FAERS Safety Report 17796389 (Version 1)
Quarter: 2020Q2

REPORT INFORMATION
  Report Type: Spontaneous
  Country: US (occurrence: US)
  Receive Date: 20200517
  Receipt Date: 20200517
  Transmission Date: 20200714
  Serious: Yes (Other)
  Sender: FDA-Public Use
  Company Number: US-AUROBINDO-AUR-APL-2020-021076

PATIENT
  Age: 74 Year
  Sex: Male

DRUGS (5)
  1. METHYLPREDNISOLONE. [Suspect]
     Active Substance: METHYLPREDNISOLONE
     Indication: OPPORTUNISTIC INFECTION
     Dosage: UNK (HIGH-DOSE)
     Route: 065
  2. VANCOMYCIN [Concomitant]
     Active Substance: VANCOMYCIN
     Indication: EVIDENCE BASED TREATMENT
     Dosage: UNK
     Route: 065
  3. METHYLPREDNISOLONE. [Suspect]
     Active Substance: METHYLPREDNISOLONE
     Indication: ORGANISING PNEUMONIA
  4. METHYLPREDNISOLONE. [Suspect]
     Active Substance: METHYLPREDNISOLONE
     Indication: RADIATION PNEUMONITIS
  5. PREDNISONE. [Suspect]
     Active Substance: PREDNISONE
     Indication: RADIATION PNEUMONITIS
     Dosage: UNK (PREDNISONE TAPER)
     Route: 065

REACTIONS (2)
  - Leukocytosis [Unknown]
  - Neutrophilia [Unknown]
